FAERS Safety Report 23663289 (Version 1)
Quarter: 2024Q1

REPORT INFORMATION
  Report Type: Spontaneous
  Country: GB (occurrence: GB)
  Receive Date: 20240322
  Receipt Date: 20240322
  Transmission Date: 20240410
  Serious: Yes (Other)
  Sender: FDA-Public Use
  Company Number: None

PATIENT
  Age: 71 Year
  Sex: Male
  Weight: 77 kg

DRUGS (11)
  1. ALLOPURINOL [Suspect]
     Active Substance: ALLOPURINOL
     Route: 065
     Dates: start: 20240301
  2. ASPIRIN [Concomitant]
     Active Substance: ASPIRIN
     Dates: start: 20231205
  3. RAMIPRIL [Concomitant]
     Active Substance: RAMIPRIL
     Dates: start: 20231205
  4. DOXYCYCLINE [Concomitant]
     Active Substance: DOXYCYCLINE
     Dosage: TAKE TWO NOW THEN
     Dates: start: 20240313
  5. ZEROCREAM [Concomitant]
     Dosage: APPLY AS DIRECTED
     Dates: start: 20230109
  6. POLYETHYLENE GLYCOL 3350\POTASSIUM CHLORIDE\SODIUM BICARBONATE\SODIUM [Concomitant]
     Active Substance: POLYETHYLENE GLYCOL 3350\POTASSIUM CHLORIDE\SODIUM BICARBONATE\SODIUM CHLORIDE
     Dosage: MIX ONE TO THREE SACHETS WITH WATER ONCE DAILY ..., DURATION: 14 DAYS
     Dates: start: 20231228, end: 20240111
  7. CYANOCOBALAMIN [Concomitant]
     Active Substance: CYANOCOBALAMIN
     Dosage: DURATION: 28 DAYS
     Dates: start: 20231228, end: 20240125
  8. EMPAGLIFLOZIN [Concomitant]
     Active Substance: EMPAGLIFLOZIN
     Dates: start: 20240312
  9. LANSOPRAZOLE [Concomitant]
     Active Substance: LANSOPRAZOLE
     Dates: start: 20231205
  10. BIMATOPROST\TIMOLOL [Concomitant]
     Active Substance: BIMATOPROST\TIMOLOL
     Dates: start: 20231205
  11. BRINZOLAMIDE [Concomitant]
     Active Substance: BRINZOLAMIDE
     Dates: start: 20231205

REACTIONS (1)
  - Hypersensitivity [Unknown]
